FAERS Safety Report 20318254 (Version 1)
Quarter: 2022Q1

REPORT INFORMATION
  Report Type: Report from Study
  Country: DE (occurrence: DE)
  Receive Date: 20220110
  Receipt Date: 20220110
  Transmission Date: 20220423
  Serious: Yes (Life-Threatening, Hospitalization, Other)
  Sender: FDA-Public Use
  Company Number: DE-TAKEDA-DE201814779

PATIENT

DRUGS (8)
  1. TEDUGLUTIDE [Suspect]
     Active Substance: TEDUGLUTIDE
     Indication: Short-bowel syndrome
     Dosage: 3.6 MG, (0.05 MG KG AND 7 DOSES PER WEEK)
     Route: 065
     Dates: start: 20150724
  2. TEDUGLUTIDE [Suspect]
     Active Substance: TEDUGLUTIDE
     Indication: Short-bowel syndrome
     Dosage: 3.6 MG, (0.05 MG KG AND 7 DOSES PER WEEK)
     Route: 065
     Dates: start: 20150724
  3. TEDUGLUTIDE [Suspect]
     Active Substance: TEDUGLUTIDE
     Indication: Short-bowel syndrome
     Dosage: 3.6 MG, (0.05 MG KG AND 7 DOSES PER WEEK)
     Route: 065
     Dates: start: 20150724
  4. TEDUGLUTIDE [Suspect]
     Active Substance: TEDUGLUTIDE
     Indication: Short-bowel syndrome
     Dosage: 3.6 MG, (0.05 MG KG AND 7 DOSES PER WEEK)
     Route: 065
     Dates: start: 20150724
  5. TAZOBACTAM [Concomitant]
     Active Substance: TAZOBACTAM
     Indication: Device related infection
     Dosage: UNK MG, UNK
  6. SELENASE [Concomitant]
     Indication: Supplementation therapy
  7. ZINKAMIN [Concomitant]
     Indication: Mineral supplementation
  8. COLESEVELAM HYDROCHLORIDE [Concomitant]
     Active Substance: COLESEVELAM HYDROCHLORIDE
     Indication: Diarrhoea

REACTIONS (1)
  - Complications of intestinal transplant [Not Recovered/Not Resolved]

NARRATIVE: CASE EVENT DATE: 20171120
